FAERS Safety Report 7229946-6 (Version None)
Quarter: 2011Q1

REPORT INFORMATION
  Report Type: 
  Country: None (occurrence: None)
  Receive Date: 20110117
  Receipt Date: 20110110
  Transmission Date: 20110831
  Serious: Yes (Hospitalization, Other)
  Sender: FDA-Public Use
  Company Number: DE-ELI_LILLY_AND_COMPANY-DE201101002299

PATIENT
  Age: 44 Year
  Sex: Female

DRUGS (7)
  1. BYETTA [Suspect]
     Indication: TYPE 2 DIABETES MELLITUS
     Dosage: 10 UG, 2/D
     Route: 058
     Dates: start: 20090601
  2. METFORMIN HCL [Concomitant]
     Dosage: 850 MG, UNK
  3. JULIETTE [Concomitant]
  4. ATACAND [Concomitant]
     Dosage: 16 MG, UNK
  5. DOXEPIN HCL [Concomitant]
     Dosage: 50 MG, UNK
  6. LEVOTHYROXINE SODIUM [Concomitant]
     Dosage: 150 UG, UNK
  7. LANSOPRAZOL [Concomitant]
     Dosage: 30 MG, UNK

REACTIONS (3)
  - PULMONARY EMBOLISM [None]
  - DYSPNOEA [None]
  - THROMBOSIS [None]
